FAERS Safety Report 11125405 (Version 1)
Quarter: 2015Q2

REPORT INFORMATION
  Report Type: Spontaneous
  Country: US (occurrence: US)
  Receive Date: 20150520
  Receipt Date: 20150520
  Transmission Date: 20150821
  Serious: Yes (Hospitalization, Other)
  Sender: FDA-Public Use
  Company Number: US-BAYER-2015-225082

PATIENT
  Age: 76 Year
  Sex: Male

DRUGS (1)
  1. GADAVIST [Suspect]
     Active Substance: GADOBUTROL
     Indication: NUCLEAR MAGNETIC RESONANCE IMAGING SPINAL
     Dosage: 9 ML, ONCE (1 MMOL/ML)
     Dates: start: 20150512

REACTIONS (5)
  - Hypertension [None]
  - Swelling face [None]
  - Discomfort [None]
  - Musculoskeletal discomfort [None]
  - Feeling hot [None]

NARRATIVE: CASE EVENT DATE: 20150512
